FAERS Safety Report 10102410 (Version 1)
Quarter: 2014Q2

REPORT INFORMATION
  Report Type: Spontaneous
  Country: US (occurrence: US)
  Receive Date: 20140424
  Receipt Date: 20140424
  Transmission Date: 20141212
  Serious: Yes (Hospitalization)
  Sender: FDA-Public Use
  Company Number: PHHY2014US047027

PATIENT
  Age: 73 Year
  Sex: Male

DRUGS (1)
  1. HYDRALAZINE [Suspect]
     Indication: HYPERTENSION

REACTIONS (11)
  - Weight increased [Unknown]
  - Vasculitis [Unknown]
  - Back pain [Unknown]
  - Haemoptysis [Unknown]
  - Respiratory distress [Unknown]
  - Dyspnoea [Unknown]
  - Malaise [Unknown]
  - Mesangioproliferative glomerulonephritis [Unknown]
  - Blood urea increased [Unknown]
  - Blood creatinine increased [Unknown]
  - Proteinuria [Unknown]
